FAERS Safety Report 15782678 (Version 1)
Quarter: 2019Q1

REPORT INFORMATION
  Report Type: Spontaneous
  Country: CN (occurrence: CN)
  Receive Date: 20190102
  Receipt Date: 20190102
  Transmission Date: 20190417
  Serious: Yes (Other)
  Sender: FDA-Public Use
  Company Number: CN-ASTELLAS-2019US000058

PATIENT
  Age: 60 Year
  Sex: Female

DRUGS (11)
  1. ERLOTINIB [Suspect]
     Active Substance: ERLOTINIB
     Dosage: UNK UNK, UNKNOWN FREQ.
     Route: 065
  2. PACLITAXEL. [Concomitant]
     Active Substance: PACLITAXEL
     Dosage: UNK, UNKNOWN FREQ.
     Route: 065
     Dates: start: 201612, end: 201702
  3. AVASTIN [Suspect]
     Active Substance: BEVACIZUMAB
     Indication: LUNG ADENOCARCINOMA
     Dosage: UNK, UNKNOWN FREQ.
     Route: 065
     Dates: start: 201508, end: 201509
  4. PACLITAXEL. [Concomitant]
     Active Substance: PACLITAXEL
     Indication: LUNG ADENOCARCINOMA
     Dosage: UNK, UNKNOWN FREQ.
     Route: 065
     Dates: start: 201508, end: 201509
  5. CARBOPLATIN. [Concomitant]
     Active Substance: CARBOPLATIN
     Dosage: UNK, UNKNOWN FREQ.
     Route: 065
     Dates: start: 201604
  6. CARBOPLATIN. [Concomitant]
     Active Substance: CARBOPLATIN
     Indication: HYDROTHORAX
     Dosage: UNK, UNKNOWN FREQ.
     Route: 065
     Dates: start: 201511, end: 201601
  7. AVASTIN [Suspect]
     Active Substance: BEVACIZUMAB
     Indication: HYDROTHORAX
     Dosage: UNK, UNKNOWN FREQ.
     Route: 065
     Dates: start: 201511, end: 201603
  8. PACLITAXEL. [Concomitant]
     Active Substance: PACLITAXEL
     Indication: HYDROTHORAX
     Dosage: UNK, UNKNOWN FREQ.
     Route: 065
     Dates: start: 201511, end: 201601
  9. ERLOTINIB [Suspect]
     Active Substance: ERLOTINIB
     Indication: LUNG ADENOCARCINOMA
     Route: 065
     Dates: start: 201605, end: 201612
  10. CARBOPLATIN. [Concomitant]
     Active Substance: CARBOPLATIN
     Indication: LUNG ADENOCARCINOMA
     Dosage: UNK, UNKNOWN FREQ.
     Route: 065
     Dates: start: 201508, end: 201509
  11. PACLITAXEL. [Concomitant]
     Active Substance: PACLITAXEL
     Dosage: UNK, UNKNOWN FREQ.
     Route: 065
     Dates: start: 201604

REACTIONS (3)
  - Drug resistance [Unknown]
  - Gastrointestinal disorder [Unknown]
  - Bone marrow failure [Unknown]

NARRATIVE: CASE EVENT DATE: 201612
